FAERS Safety Report 24441822 (Version 3)
Quarter: 2025Q3

REPORT INFORMATION
  Report Type: Spontaneous
  Country: US (occurrence: US)
  Receive Date: 20241016
  Receipt Date: 20250918
  Transmission Date: 20251021
  Serious: No
  Sender: ROCHE
  Company Number: US-ROCHE-3510854

PATIENT
  Sex: Male

DRUGS (2)
  1. HEMLIBRA [Suspect]
     Active Substance: EMICIZUMAB-KXWH
     Indication: Haemophilia carrier
     Dosage: STRENGTH:60 MG/0.4ML
     Route: 058
     Dates: start: 202202
  2. HEMLIBRA [Suspect]
     Active Substance: EMICIZUMAB-KXWH
     Dosage: STRENGTH:60 MG/0.4ML
     Route: 058
     Dates: start: 202202

REACTIONS (3)
  - Fall [Unknown]
  - Head injury [Unknown]
  - Inflammation [Unknown]
